FAERS Safety Report 14557211 (Version 1)
Quarter: 2018Q1

REPORT INFORMATION
  Report Type: Spontaneous
  Country: RU (occurrence: RU)
  Receive Date: 20180221
  Receipt Date: 20180221
  Transmission Date: 20180509
  Serious: Yes (Hospitalization, Other)
  Sender: FDA-Public Use
  Company Number: RU-ASTRAZENECA-2018SE21135

PATIENT
  Age: 2 Month
  Sex: Male

DRUGS (1)
  1. PULMICORT TURBUHALER [Suspect]
     Active Substance: BUDESONIDE
     Dosage: DOSE OF 0.25 MG, WHICH WAS USED 2-4 TIMES, UP TO 1 MG PER DAY
     Route: 055

REACTIONS (4)
  - Obstructive airways disorder [Unknown]
  - Drug administered to patient of inappropriate age [Unknown]
  - Off label use [Unknown]
  - Product use in unapproved indication [Unknown]
